FAERS Safety Report 4611773-7 (Version None)
Quarter: 2005Q1

REPORT INFORMATION
  Report Type: 
  Country: None (occurrence: None)
  Receive Date: 20050308
  Receipt Date: 20041203
  Transmission Date: 20050727
  Serious: Yes (Other)
  Sender: FDA-Public Use
  Company Number: 2004UW24906

PATIENT
  Age: 56 Year
  Sex: Male
  Weight: 77.11 kg

DRUGS (6)
  1. CRESTOR [Suspect]
     Indication: BLOOD CHOLESTEROL INCREASED
     Dosage: 10 MG PO
     Route: 048
     Dates: start: 20040801
  2. NORVASC [Concomitant]
  3. HYDROCHLOROTHIAZIDE [Concomitant]
  4. FLOMAX [Concomitant]
  5. TOPROL-XL [Concomitant]
  6. NEXIUM [Concomitant]

REACTIONS (1)
  - CHROMATURIA [None]
